FAERS Safety Report 17984185 (Version 1)
Quarter: 2020Q3

REPORT INFORMATION
  Report Type: Spontaneous
  Country: US (occurrence: US)
  Receive Date: 20200706
  Receipt Date: 20200706
  Transmission Date: 20201103
  Serious: Yes (Other)
  Sender: FDA-Public Use
  Company Number: None

PATIENT
  Age: 47 Year
  Sex: Female
  Weight: 108 kg

DRUGS (6)
  1. HYDROXODENE [Concomitant]
  2. ELAVIL [Concomitant]
     Active Substance: AMITRIPTYLINE HYDROCHLORIDE
  3. ZANAFLEX [Suspect]
     Active Substance: TIZANIDINE HYDROCHLORIDE
     Indication: MUSCLE SPASMS
     Dosage: ?          QUANTITY:3 TABLET(S);?
     Route: 048
     Dates: start: 20130101, end: 20200701
  4. LYRICA [Concomitant]
     Active Substance: PREGABALIN
  5. HYDROCHLORATHYADIZE [Concomitant]
  6. LISINOPRIL. [Concomitant]
     Active Substance: LISINOPRIL

REACTIONS (9)
  - Product distribution issue [None]
  - Therapy change [None]
  - Product prescribing issue [None]
  - Insomnia [None]
  - Symptom recurrence [None]
  - Transcription medication error [None]
  - Loss of personal independence in daily activities [None]
  - Fall [None]
  - Muscle spasms [None]

NARRATIVE: CASE EVENT DATE: 20200608
